FAERS Safety Report 9239344 (Version 4)
Quarter: 2013Q3

REPORT INFORMATION
  Report Type: Report from Study
  Country: US (occurrence: US)
  Receive Date: 20130418
  Receipt Date: 20130719
  Transmission Date: 20140515
  Serious: Yes (Hospitalization, Other)
  Sender: FDA-Public Use
  Company Number: US-ABBOTT-13P-163-1049476-00

PATIENT
  Age: 66 Year
  Sex: Female
  Weight: 56.75 kg

DRUGS (12)
  1. HUMIRA [Suspect]
     Indication: RHEUMATOID ARTHRITIS
     Dates: start: 201004, end: 201301
  2. METHOTREXATE [Concomitant]
     Indication: PRODUCT USED FOR UNKNOWN INDICATION
     Dosage: 20 MG WEEKLY, APPROXIMATELY THREE TO FOUR YEARS
     Route: 048
  3. RELAFEN [Concomitant]
     Indication: PRODUCT USED FOR UNKNOWN INDICATION
     Route: 048
  4. PREMARIN [Concomitant]
     Indication: PRODUCT USED FOR UNKNOWN INDICATION
     Route: 048
  5. ALTACE [Concomitant]
     Indication: CARDIOVASCULAR EVENT PROPHYLAXIS
     Route: 048
  6. FISH OIL [Concomitant]
     Indication: PRODUCT USED FOR UNKNOWN INDICATION
     Route: 048
  7. NIACIN [Concomitant]
     Indication: PRODUCT USED FOR UNKNOWN INDICATION
     Dosage: UNKNOWN DOSE; DAILY
     Route: 048
  8. MULTIVITAMIN [Concomitant]
     Indication: PRODUCT USED FOR UNKNOWN INDICATION
     Dosage: DAILY
  9. LIPITOR [Concomitant]
     Indication: BLOOD PRESSURE MANAGEMENT
  10. ESTROGEN NOS [Concomitant]
     Indication: PRODUCT USED FOR UNKNOWN INDICATION
  11. FOLIC ACID [Concomitant]
     Indication: PRODUCT USED FOR UNKNOWN INDICATION
  12. BABY ASPIRIN [Concomitant]
     Indication: PRODUCT USED FOR UNKNOWN INDICATION

REACTIONS (16)
  - Progressive multifocal leukoencephalopathy [Not Recovered/Not Resolved]
  - Cerebrovascular accident [Unknown]
  - Dysarthria [Unknown]
  - Movement disorder [Unknown]
  - Aortic stenosis [Unknown]
  - Mitral valve prolapse [Unknown]
  - Mitral valve incompetence [Unknown]
  - Tricuspid valve incompetence [Unknown]
  - Left ventricular hypertrophy [Unknown]
  - Left atrial dilatation [Unknown]
  - Thyroid neoplasm [Unknown]
  - Lung disorder [Unknown]
  - Gait disturbance [Unknown]
  - Atrophy [Unknown]
  - Cerebrovascular disorder [Unknown]
  - Acute sinusitis [Unknown]
